FAERS Safety Report 4456922-9 (Version None)
Quarter: 2004Q3

REPORT INFORMATION
  Report Type: 
  Country: None (occurrence: None)
  Receive Date: 20040921
  Receipt Date: 20040907
  Transmission Date: 20050211
  Serious: Yes (Disabling, Other)
  Sender: FDA-Public Use
  Company Number: 2004233033GB

PATIENT
  Age: 14 Year
  Sex: Male
  Weight: 34.1 kg

DRUGS (4)
  1. GENOTROPIN [Suspect]
     Dosage: 1 MG, QD, SUBCUTANEOUS
     Route: 058
     Dates: start: 19950329
  2. FLEXOTIDE [Concomitant]
  3. TRIMETHOPRIM [Concomitant]
  4. FLIXOTIDE (FLUTICASONE PROPIONATE) [Concomitant]

REACTIONS (1)
  - RHEUMATOID ARTHRITIS [None]
